FAERS Safety Report 6067595-6 (Version None)
Quarter: 2009Q1

REPORT INFORMATION
  Report Type: 
  Country: None (occurrence: None)
  Receive Date: 20090205
  Receipt Date: 20090126
  Transmission Date: 20090719
  Serious: Yes (Hospitalization, Other)
  Sender: FDA-Public Use
  Company Number: FR-ABBOTT-09P-056-0499649-00

PATIENT
  Age: 35 Year
  Sex: Male
  Weight: 80 kg

DRUGS (6)
  1. NORVIR [Suspect]
     Indication: HIV INFECTION
     Route: 048
     Dates: start: 20081216, end: 20090102
  2. ATAZANAVIR [Suspect]
     Indication: HIV INFECTION
     Route: 048
     Dates: start: 20081216, end: 20090102
  3. SULFAMETHOXAZOLE AND TRIMETHOPRIM [Suspect]
     Indication: PNEUMOCYSTIS JIROVECI PNEUMONIA
     Route: 048
     Dates: start: 20081206, end: 20090102
  4. METHYLPREDNISOLONE [Suspect]
     Indication: PNEUMOCYSTIS JIROVECI PNEUMONIA
     Route: 048
     Dates: start: 20081210, end: 20081231
  5. ZOPICLONE [Suspect]
     Indication: DRUG USE FOR UNKNOWN INDICATION
     Route: 048
     Dates: start: 20081218, end: 20081231
  6. TRUVADA [Suspect]
     Indication: HIV INFECTION
     Dates: start: 20081216, end: 20090102

REACTIONS (13)
  - ARTHRALGIA [None]
  - BEDRIDDEN [None]
  - CONDITION AGGRAVATED [None]
  - HYPERAESTHESIA [None]
  - HYPERPALLAESTHESIA [None]
  - MYALGIA [None]
  - NERVOUS SYSTEM DISORDER [None]
  - NEURALGIA [None]
  - PAIN [None]
  - PARAESTHESIA [None]
  - PERIPHERAL SENSORY NEUROPATHY [None]
  - PRURIGO [None]
  - PYREXIA [None]
